FAERS Safety Report 6238627-7 (Version None)
Quarter: 2009Q2

REPORT INFORMATION
  Report Type: 
  Country: None (occurrence: None)
  Receive Date: 20090622
  Receipt Date: 20090612
  Transmission Date: 20091009
  Serious: Yes (Death, Other)
  Sender: FDA-Public Use
  Company Number: FR-PFIZER INC-2009226415

PATIENT
  Age: 70 Year

DRUGS (12)
  1. SOLU-MEDROL [Suspect]
     Indication: PREMEDICATION
     Dosage: UNK
     Route: 042
     Dates: start: 20081104, end: 20081104
  2. ACUPAN [Suspect]
     Dosage: 3 DF, UNK
     Route: 042
     Dates: start: 20081104
  3. ELOXATIN [Suspect]
     Indication: CHEMOTHERAPY
     Dosage: 150 UNK, UNK
     Route: 042
     Dates: start: 20081104, end: 20081104
  4. FLUOROURACIL [Suspect]
     Indication: CHEMOTHERAPY
     Dosage: UNK
     Route: 042
     Dates: start: 20081104, end: 20081105
  5. ONDANSETRON HCL [Suspect]
     Indication: PREMEDICATION
     Dosage: UNK
     Route: 042
     Dates: start: 20081104, end: 20081104
  6. PRIMPERAN [Suspect]
     Indication: PREMEDICATION
     Dosage: UNK
     Route: 042
     Dates: start: 20081104, end: 20081104
  7. AVASTIN [Suspect]
     Indication: CHEMOTHERAPY
     Dosage: UNK
     Route: 042
     Dates: start: 20081106, end: 20081106
  8. TAVANIC [Concomitant]
  9. AUGMENTIN [Concomitant]
  10. LASIX [Concomitant]
  11. NEXIUM [Concomitant]
  12. XATRAL [Concomitant]

REACTIONS (1)
  - MYOCARDIAL INFARCTION [None]
